FAERS Safety Report 22240321 (Version 9)
Quarter: 2023Q4

REPORT INFORMATION
  Report Type: Spontaneous
  Country: US (occurrence: US)
  Receive Date: 20230421
  Receipt Date: 20231226
  Transmission Date: 20240109
  Serious: Yes (Hospitalization, Other)
  Sender: FDA-Public Use
  Company Number: US-BIOGEN-2021BI01034401

PATIENT
  Age: 9 Year
  Sex: Male

DRUGS (5)
  1. TYSABRI [Suspect]
     Active Substance: NATALIZUMAB
     Indication: Multiple sclerosis
     Dosage: 300 MG/15 ML, INFUSED OVER 1 HOUR
     Route: 050
     Dates: start: 20231005, end: 20231206
  2. TYSABRI [Suspect]
     Active Substance: NATALIZUMAB
     Dosage: INFUSED OVER 1 HOUR
     Route: 050
     Dates: start: 20210802, end: 20230419
  3. MYCOPHENOLIC ACID [Concomitant]
     Active Substance: MYCOPHENOLIC ACID
     Route: 050
  4. CYCLOPHOSPHAMIDE [Concomitant]
     Active Substance: CYCLOPHOSPHAMIDE
     Route: 050
  5. TACROLIMUS [Concomitant]
     Active Substance: TACROLIMUS
     Route: 050

REACTIONS (8)
  - Noninfective encephalitis [Unknown]
  - Cerebral disorder [Unknown]
  - Off label use [Not Recovered/Not Resolved]
  - Inappropriate schedule of product administration [Unknown]
  - Sleep disorder [Unknown]
  - Visual impairment [Unknown]
  - Spleen disorder [Unknown]
  - Headache [Unknown]

NARRATIVE: CASE EVENT DATE: 20210802
